FAERS Safety Report 6823130-3 (Version None)
Quarter: 2010Q3

REPORT INFORMATION
  Report Type: 
  Country: None (occurrence: None)
  Receive Date: 20100708
  Receipt Date: 20100629
  Transmission Date: 20110219
  Serious: Yes (Disabling)
  Sender: FDA-Public Use
  Company Number: US-PURDUE-USA-2010-0042538

PATIENT
  Sex: Female
  Weight: 63.492 kg

DRUGS (3)
  1. OXYCONTIN [Suspect]
     Indication: PAIN
     Dosage: 10 MG, Q12H
     Dates: start: 20070918, end: 20080110
  2. OXYCONTIN [Suspect]
     Indication: NECK PAIN
  3. OXYCONTIN [Suspect]
     Indication: PROCEDURAL PAIN

REACTIONS (1)
  - ALOPECIA [None]
